FAERS Safety Report 5781046-8 (Version None)
Quarter: 2008Q2

REPORT INFORMATION
  Report Type: 
  Country: None (occurrence: None)
  Receive Date: 20080618
  Receipt Date: 20080609
  Transmission Date: 20081010
  Serious: Yes (Death)
  Sender: FDA-Public Use
  Company Number: JPI-P-003821

PATIENT
  Sex: Male

DRUGS (6)
  1. XYREM [Suspect]
     Indication: SLEEP DISORDER
     Dosage: 50 MG (50 MG, 1 IN 1 D), 9 GM (4.5 GM, 2 IN 1 D) ORAL
  2. DESIPRAMINE HYDROCHLORIDE [Suspect]
     Indication: DRUG USE FOR UNKNOWN INDICATION
     Dosage: 50 MG (50 MG, 1 IN 1 D)
  3. CARVEDILOL [Concomitant]
  4. ATORVASTATIN CALCIUM [Concomitant]
  5. LISINOPRIL [Concomitant]
  6. GLYBURIDE AND METFORMIN      (SIL-NORBORAL) [Concomitant]

REACTIONS (2)
  - MALAISE [None]
  - NEOPLASM MALIGNANT [None]
